FAERS Safety Report 20320546 (Version 1)
Quarter: 2022Q1

REPORT INFORMATION
  Report Type: Spontaneous
  Country: AU (occurrence: AU)
  Receive Date: 20220111
  Receipt Date: 20220111
  Transmission Date: 20220423
  Serious: Yes (Death, Hospitalization, Other)
  Sender: FDA-Public Use
  Company Number: AU-GLAXOSMITHKLINE-AU2022APC001299

PATIENT
  Age: 34 Year
  Sex: Female

DRUGS (2)
  1. AMBRISENTAN [Suspect]
     Active Substance: AMBRISENTAN
     Indication: Product used for unknown indication
     Dosage: 10 MG, QD
     Route: 048
  2. TADALAFIL [Suspect]
     Active Substance: TADALAFIL
     Indication: Product used for unknown indication
     Dosage: 40 MG, QD, 2 X 20MG
     Route: 065

REACTIONS (13)
  - Death [Fatal]
  - Cellulitis [Unknown]
  - Cardiogenic shock [Unknown]
  - Systemic lupus erythematosus [Unknown]
  - Hypothermia [Unknown]
  - Pulseless electrical activity [Unknown]
  - Injury [Unknown]
  - Pain [Unknown]
  - Swelling [Unknown]
  - Pyrexia [Unknown]
  - Chills [Unknown]
  - Dyspnoea [Unknown]
  - Treatment noncompliance [Unknown]

NARRATIVE: CASE EVENT DATE: 20211231
